FAERS Safety Report 4510315-4 (Version None)
Quarter: 2004Q4

REPORT INFORMATION
  Report Type: 
  Country: None (occurrence: None)
  Receive Date: 20041122
  Receipt Date: 20041112
  Transmission Date: 20050328
  Serious: Yes (Other)
  Sender: FDA-Public Use
  Company Number: 2004052691

PATIENT
  Sex: Female

DRUGS (5)
  1. LIPITOR [Suspect]
     Indication: HYPERLIPIDAEMIA
     Dosage: 20 MG, ORAL
     Route: 048
     Dates: start: 20040401
  2. METFORMIN HCL [Concomitant]
  3. LISINOPRIL [Concomitant]
  4. CELECOXIB (CELECOXIB) [Concomitant]
  5. NIFEDIPINE [Concomitant]

REACTIONS (3)
  - BLOOD CHOLESTEROL INCREASED [None]
  - LOW DENSITY LIPOPROTEIN INCREASED [None]
  - THYROID NEOPLASM [None]
